FAERS Safety Report 16952937 (Version 3)
Quarter: 2019Q4

REPORT INFORMATION
  Report Type: Report from Study
  Country: IT (occurrence: IT)
  Receive Date: 20191023
  Receipt Date: 20191030
  Transmission Date: 20200122
  Serious: Yes (Other)
  Sender: FDA-Public Use
  Company Number: PHHY2019IT182407

PATIENT
  Age: 66 Year
  Sex: Male
  Weight: 95 kg

DRUGS (6)
  1. TRAMETINIB [Suspect]
     Active Substance: TRAMETINIB
     Dosage: 0.5 MG
     Route: 048
     Dates: start: 20190907, end: 20190914
  2. RAMIPRIL. [Suspect]
     Active Substance: RAMIPRIL
     Indication: HYPERTENSION
     Dosage: 0.5 DF, UNK
     Route: 065
     Dates: end: 20190716
  3. INSULIN [Concomitant]
     Active Substance: INSULIN NOS
     Indication: DIABETES MELLITUS
     Route: 065
  4. DABRAFENIB [Suspect]
     Active Substance: DABRAFENIB
     Indication: ADJUVANT THERAPY
     Dosage: 150 MG, BID
     Route: 048
     Dates: start: 20181214, end: 20190718
  5. TRAMETINIB [Suspect]
     Active Substance: TRAMETINIB
     Indication: ADJUVANT THERAPY
     Dosage: 2 MG, QD
     Route: 048
     Dates: start: 20181214, end: 20190718
  6. DABRAFENIB [Suspect]
     Active Substance: DABRAFENIB
     Dosage: 50 MG, BID
     Route: 048
     Dates: start: 20190907, end: 20190914

REACTIONS (8)
  - Acute kidney injury [Recovered/Resolved]
  - Uveitis [Recovering/Resolving]
  - Pyrexia [Recovered/Resolved]
  - Pyrexia [Recovered/Resolved]
  - Oedema [Unknown]
  - Hyperpyrexia [Recovered/Resolved]
  - Visual acuity reduced [Unknown]
  - Dehydration [Unknown]

NARRATIVE: CASE EVENT DATE: 20190507
